FAERS Safety Report 11145737 (Version 1)
Quarter: 2015Q2

REPORT INFORMATION
  Report Type: Spontaneous
  Country: US (occurrence: None)
  Receive Date: 20150526
  Receipt Date: 20150526
  Transmission Date: 20150821
  Serious: Yes (Hospitalization)
  Sender: FDA-Public Use
  Company Number: None

PATIENT
  Age: 37 Year
  Sex: Female
  Weight: 49.9 kg

DRUGS (3)
  1. LITHIUM CR [Suspect]
     Active Substance: LITHIUM CARBONATE
  2. SEROQUEL [Concomitant]
     Active Substance: QUETIAPINE FUMARATE
  3. LORAZEPAM. [Concomitant]
     Active Substance: LORAZEPAM

REACTIONS (10)
  - Balance disorder [None]
  - Inappropriate affect [None]
  - Insomnia [None]
  - Drug dispensing error [None]
  - Dizziness [None]
  - Headache [None]
  - Impulsive behaviour [None]
  - Wrong drug administered [None]
  - Speech disorder [None]
  - Tremor [None]

NARRATIVE: CASE EVENT DATE: 20150201
